FAERS Safety Report 7746848-7 (Version None)
Quarter: 2011Q3

REPORT INFORMATION
  Report Type: 
  Country: None (occurrence: None)
  Receive Date: 20110913
  Receipt Date: 20110906
  Transmission Date: 20111222
  Serious: Yes (Hospitalization, Other)
  Sender: FDA-Public Use
  Company Number: US-ABBOTT-11P-163-0852152-00

PATIENT
  Sex: Female
  Weight: 92.616 kg

DRUGS (3)
  1. HUMIRA [Suspect]
     Indication: RHEUMATOID ARTHRITIS
     Dates: start: 20050101
  2. HUMIRA [Suspect]
     Indication: PSORIATIC ARTHROPATHY
  3. BENAZOPRIL [Concomitant]
     Indication: HYPERTENSION

REACTIONS (6)
  - INJECTION SITE PAIN [None]
  - VAGINAL HAEMORRHAGE [None]
  - BLOOD GLUCOSE FLUCTUATION [None]
  - UTERINE LEIOMYOMA [None]
  - DIABETES MELLITUS [None]
  - INJECTION SITE HAEMATOMA [None]
